FAERS Safety Report 15800053 (Version 3)
Quarter: 2019Q2

REPORT INFORMATION
  Report Type: Report from Study
  Country: FR (occurrence: FR)
  Receive Date: 20190108
  Receipt Date: 20190430
  Transmission Date: 20190711
  Serious: Yes (Hospitalization, Other)
  Sender: FDA-Public Use
  Company Number: FR-SEATTLE GENETICS-2018SGN03509

PATIENT
  Age: 20 Year
  Sex: Male
  Weight: 50 kg

DRUGS (9)
  1. ICE                                /06761101/ [Concomitant]
     Indication: HODGKIN^S DISEASE
     Dosage: UNK
     Route: 065
     Dates: start: 20171127, end: 20180111
  2. VALACICLOVIR [Concomitant]
     Active Substance: VALACYCLOVIR HYDROCHLORIDE
     Indication: PROPHYLAXIS
     Dosage: 500 MG, BID
     Route: 048
     Dates: start: 20171127
  3. LEVOTHYROX [Concomitant]
     Active Substance: LEVOTHYROXINE
     Indication: THYROID HORMONE REPLACEMENT THERAPY
     Dosage: 75 UG, QD
     Route: 048
     Dates: start: 20160115
  4. BRENTUXIMAB VEDOTIN-MPI [Suspect]
     Active Substance: BRENTUXIMAB VEDOTIN
     Dosage: 90 MG, UNK
     Route: 065
     Dates: start: 20180516
  5. COTRIMOXAZOLE [Concomitant]
     Active Substance: SULFAMETHOXAZOLE\TRIMETHOPRIM
     Indication: PROPHYLAXIS
     Dosage: UNK
     Route: 048
     Dates: start: 20181127
  6. LEDERFOLIN [Concomitant]
     Active Substance: LEUCOVORIN CALCIUM
     Indication: PROPHYLAXIS
     Dosage: 25 MG, TID
     Route: 048
     Dates: start: 20171127
  7. VALACICLOVIR [Concomitant]
     Active Substance: VALACYCLOVIR HYDROCHLORIDE
     Dosage: 500 MG, BID
     Route: 048
     Dates: start: 20171127
  8. BRENTUXIMAB VEDOTIN-MPI [Suspect]
     Active Substance: BRENTUXIMAB VEDOTIN
     Indication: HODGKIN^S DISEASE
     Dosage: UNK
     Route: 065
     Dates: start: 20171127
  9. ORACILLINE                         /00001801/ [Concomitant]
     Active Substance: PENICILLIN V
     Indication: PROPHYLAXIS
     Dosage: 1 MU
     Route: 048
     Dates: start: 20171127

REACTIONS (21)
  - Pyrexia [Recovered/Resolved]
  - Lymphadenitis [Unknown]
  - Thrombocytopenia [Recovered/Resolved]
  - Blood chloride increased [Unknown]
  - Lymphadenopathy [Unknown]
  - Meningitis streptococcal [Recovered/Resolved]
  - Blood sodium decreased [Unknown]
  - Psychomotor skills impaired [Recovered/Resolved]
  - Oral herpes [Recovering/Resolving]
  - Nausea [Recovered/Resolved]
  - Neutrophil count increased [Unknown]
  - Blood bicarbonate decreased [Unknown]
  - Monocyte count decreased [Recovered/Resolved]
  - Red blood cell count decreased [Recovered/Resolved]
  - Alanine aminotransferase increased [Recovered/Resolved]
  - Streptococcal bacteraemia [Recovered/Resolved]
  - Gamma-glutamyltransferase increased [Recovered/Resolved]
  - Headache [Not Recovered/Not Resolved]
  - Hepatocellular injury [Recovered/Resolved]
  - Vomiting [Recovered/Resolved]
  - Off label use [Recovering/Resolving]

NARRATIVE: CASE EVENT DATE: 201807
